FAERS Safety Report 23716750 (Version 3)
Quarter: 2024Q2

REPORT INFORMATION
  Report Type: Spontaneous
  Country: IT (occurrence: IT)
  Receive Date: 20240408
  Receipt Date: 20240518
  Transmission Date: 20240716
  Serious: Yes (Other)
  Sender: FDA-Public Use
  Company Number: IT-JNJFOC-20240339191

PATIENT
  Age: 20 Year
  Sex: Male

DRUGS (19)
  1. LORAZEPAM [Suspect]
     Active Substance: LORAZEPAM
     Indication: Schizophrenia
     Dosage: 4 MILLIGRAM, DAILY
     Route: 065
  2. LORAZEPAM [Suspect]
     Active Substance: LORAZEPAM
     Indication: Anxiety
  3. LORAZEPAM [Suspect]
     Active Substance: LORAZEPAM
     Indication: Obsessive-compulsive disorder
  4. LORAZEPAM [Suspect]
     Active Substance: LORAZEPAM
     Indication: Paranoia
  5. LORAZEPAM [Suspect]
     Active Substance: LORAZEPAM
     Indication: Behaviour disorder
  6. LITHIUM CARBONATE [Suspect]
     Active Substance: LITHIUM CARBONATE
     Indication: Schizophrenia
     Dosage: 900 MILLIGRAM, DAILY
     Route: 065
  7. LITHIUM CARBONATE [Suspect]
     Active Substance: LITHIUM CARBONATE
     Indication: Obsessive-compulsive disorder
  8. LITHIUM CARBONATE [Suspect]
     Active Substance: LITHIUM CARBONATE
     Indication: Paranoia
  9. LITHIUM CARBONATE [Suspect]
     Active Substance: LITHIUM CARBONATE
     Indication: Anxiety
  10. LITHIUM CARBONATE [Suspect]
     Active Substance: LITHIUM CARBONATE
     Indication: Behaviour disorder
  11. RISPERDAL [Suspect]
     Active Substance: RISPERIDONE
     Indication: Schizophrenia
     Dosage: 2 MILLIGRAM, DAILY
     Route: 065
  12. RISPERDAL [Suspect]
     Active Substance: RISPERIDONE
     Indication: Obsessive-compulsive symptom
     Dosage: 1 MILLIGRAM, DAILY (AT WEEK 3)
     Route: 065
  13. RISPERDAL [Suspect]
     Active Substance: RISPERIDONE
     Indication: Anxiety
     Dosage: 2 MILLIGRAM, DAILY ( AT WEEK 2)
     Route: 065
  14. RISPERDAL [Suspect]
     Active Substance: RISPERIDONE
     Indication: Behaviour disorder
     Dosage: 4 MILLIGRAM, DAILY
     Route: 065
  15. RISPERDAL [Suspect]
     Active Substance: RISPERIDONE
     Indication: Paranoia
     Dosage: 3 MILLIGRAM, DAILY (AT WEEK 1)
     Route: 065
  16. LURASIDONE [Concomitant]
     Active Substance: LURASIDONE
     Indication: Obsessive-compulsive symptom
     Dosage: 148 MILLIGRAM, DAILY
     Route: 065
  17. LURASIDONE [Concomitant]
     Active Substance: LURASIDONE
     Dosage: 74 MILLIGRAM, DAILY
     Route: 065
  18. LURASIDONE [Concomitant]
     Active Substance: LURASIDONE
     Dosage: 111 MILLIGRAM, DAILY
     Route: 065
  19. LURASIDONE [Concomitant]
     Active Substance: LURASIDONE
     Dosage: 37 MILLIGRAM, DAILY
     Route: 065

REACTIONS (9)
  - Blood prolactin increased [Recovered/Resolved]
  - Hyperprolactinaemia [Recovered/Resolved]
  - Drug ineffective [Recovered/Resolved]
  - Hypokinesia [Recovered/Resolved]
  - Weight increased [Recovered/Resolved]
  - Therapeutic product effect decreased [Unknown]
  - Bradykinesia [Recovered/Resolved]
  - Obsessive-compulsive symptom [Recovered/Resolved]
  - Apraxia [Recovered/Resolved]
